FAERS Safety Report 21345391 (Version 1)
Quarter: 2022Q3

REPORT INFORMATION
  Report Type: Spontaneous
  Country: DK (occurrence: DK)
  Receive Date: 20220916
  Receipt Date: 20220916
  Transmission Date: 20221027
  Serious: Yes (Other)
  Sender: FDA-Public Use
  Company Number: DK-ALLERGAN-2230363US

PATIENT
  Sex: Female

DRUGS (1)
  1. NITROGLYCERIN [Suspect]
     Active Substance: NITROGLYCERIN
     Indication: Angina pectoris
     Dosage: 0.4 MG
     Dates: start: 20181128

REACTIONS (11)
  - Photophobia [Unknown]
  - Motion sickness [Not Recovered/Not Resolved]
  - Malaise [Unknown]
  - Fatigue [Not Recovered/Not Resolved]
  - Sluggishness [Unknown]
  - Hyperacusis [Unknown]
  - Hypertension [Not Recovered/Not Resolved]
  - Dizziness [Not Recovered/Not Resolved]
  - Headache [Not Recovered/Not Resolved]
  - Syncope [Unknown]
  - Product use in unapproved indication [Unknown]

NARRATIVE: CASE EVENT DATE: 20181101
